FAERS Safety Report 4731945-0 (Version None)
Quarter: 2005Q3

REPORT INFORMATION
  Report Type: 
  Country: None (occurrence: None)
  Receive Date: 20050725
  Receipt Date: 20041011
  Transmission Date: 20060218
  Serious: Yes (Other)
  Sender: FDA-Public Use
  Company Number: WAES 0410USA01657

PATIENT
  Age: 67 Year
  Sex: Female

DRUGS (2)
  1. VIOXX [Suspect]
     Indication: ARTHRITIS
     Dosage: 25 MG/DAILY/PO
     Route: 048
     Dates: start: 20030701, end: 20031001
  2. FOSAMAX [Concomitant]

REACTIONS (3)
  - HEPATIC ENZYME INCREASED [None]
  - URINE ODOUR ABNORMAL [None]
  - VASODILATION PROCEDURE [None]
